FAERS Safety Report 7694750-1 (Version None)
Quarter: 2011Q3

REPORT INFORMATION
  Report Type: 
  Country: None (occurrence: None)
  Receive Date: 20110816
  Receipt Date: 20110803
  Transmission Date: 20111222
  Serious: Yes (Hospitalization, Other)
  Sender: FDA-Public Use
  Company Number: AUR-APL-2011-04588

PATIENT
  Age: 18 Year

DRUGS (5)
  1. ARIPIPRAZOLE [Concomitant]
  2. BUPROPION HCL [Concomitant]
  3. LAMOTRIGINE [Suspect]
     Indication: PRODUCT USED FOR UNKNOWN INDICATION
  4. CYCLOSPORINE (CUCLOSPORIN) [Concomitant]
  5. LOTEPREDNOL (LOTEPREDNOL) [Concomitant]

REACTIONS (8)
  - ONYCHOLYSIS [None]
  - STEVENS-JOHNSON SYNDROME [None]
  - NAIL DISORDER [None]
  - SKIN LESION [None]
  - SKIN PAPILLOMA [None]
  - EYE IRRITATION [None]
  - SEBACEOUS GLAND DISORDER [None]
  - ONYCHOCLASIS [None]
